FAERS Safety Report 8543360-2 (Version None)
Quarter: 2012Q3

REPORT INFORMATION
  Report Type: 
  Country: None (occurrence: None)
  Receive Date: 20120727
  Receipt Date: 20120723
  Transmission Date: 20120928
  Serious: No
  Sender: FDA-Public Use
  Company Number: US-B.I. PHARMACEUTICALS,INC./RIDGEFIELD-2012-BP-14885BP

PATIENT
  Age: 84 Year
  Sex: Female

DRUGS (3)
  1. CIPROFLAXACIN [Concomitant]
     Indication: RESPIRATORY TRACT INFECTION
     Dosage: 500 MG
     Route: 048
     Dates: start: 20120625
  2. CRESTOR [Concomitant]
     Indication: BLOOD CHOLESTEROL INCREASED
     Dosage: 20 MG
     Route: 048
     Dates: start: 20120601
  3. MICARDIS [Suspect]
     Indication: HYPERTENSION
     Dosage: 20 MG
     Route: 048
     Dates: start: 20120626

REACTIONS (4)
  - SINUS CONGESTION [None]
  - BACK PAIN [None]
  - JOINT SWELLING [None]
  - CONSTIPATION [None]
